FAERS Safety Report 9236233 (Version 1)
Quarter: 2013Q2

REPORT INFORMATION
  Report Type: Spontaneous
  Country: US (occurrence: None)
  Receive Date: 20130416
  Receipt Date: 20130416
  Transmission Date: 20140414
  Serious: Yes (Hospitalization)
  Sender: FDA-Public Use
  Company Number: None

PATIENT
  Sex: 0
  Weight: 72.58 kg

DRUGS (2)
  1. LEVAQUIN [Suspect]
     Indication: PNEUMONIA
     Dates: start: 20130213, end: 20130220
  2. LEVAQUIN [Suspect]
     Indication: PSYCHOTIC DISORDER
     Dates: start: 20130213, end: 20130220

REACTIONS (5)
  - Abnormal behaviour [None]
  - Agitation [None]
  - Musculoskeletal pain [None]
  - Suicidal behaviour [None]
  - Psychotic disorder [None]
